FAERS Safety Report 13388448 (Version 1)
Quarter: 2017Q1

REPORT INFORMATION
  Report Type: Spontaneous
  Country: BR (occurrence: BR)
  Receive Date: 20170330
  Receipt Date: 20170330
  Transmission Date: 20170429
  Serious: Yes (Other)
  Sender: FDA-Public Use
  Company Number: BR-GLAXOSMITHKLINE-BR2017GSK042641

PATIENT
  Age: 2 Year
  Sex: Male

DRUGS (2)
  1. ZINNAT [Suspect]
     Active Substance: CEFUROXIME AXETIL
     Indication: PATHOGEN RESISTANCE
     Dosage: UNK
     Dates: start: 20170319
  2. AMOXICILLIN. [Suspect]
     Active Substance: AMOXICILLIN
     Indication: PRODUCT USED FOR UNKNOWN INDICATION

REACTIONS (4)
  - Pathogen resistance [Unknown]
  - Drug effect decreased [Unknown]
  - Wrong technique in product usage process [Unknown]
  - Incorrect product storage [Unknown]
